FAERS Safety Report 5773438-8 (Version None)
Quarter: 2008Q2

REPORT INFORMATION
  Report Type: 
  Country: None (occurrence: None)
  Receive Date: 20080616
  Receipt Date: 20080605
  Transmission Date: 20081010
  Serious: Yes (Other)
  Sender: FDA-Public Use
  Company Number: FR-AVENTIS-200812155FR

PATIENT

DRUGS (1)
  1. LOVENOX [Suspect]

REACTIONS (6)
  - DIARRHOEA [None]
  - DYSPEPSIA [None]
  - HAEMORRHAGE [None]
  - HYPERSENSITIVITY [None]
  - TYPE 1 DIABETES MELLITUS [None]
  - VOMITING [None]
